FAERS Safety Report 4399518-X (Version None)
Quarter: 2004Q3

REPORT INFORMATION
  Report Type: 
  Country: None (occurrence: None)
  Receive Date: 20040716
  Receipt Date: 20040114
  Transmission Date: 20050211
  Serious: Yes (Hospitalization)
  Sender: FDA-Public Use
  Company Number: USGLA-S-20040029

PATIENT
  Age: 63 Year
  Sex: Male

DRUGS (11)
  1. NAVELBINE [Suspect]
     Route: 042
     Dates: start: 20031101
  2. COUMADIN [Concomitant]
  3. PREDNISONE [Concomitant]
  4. LASIX [Concomitant]
  5. CAPTOPRIL [Concomitant]
  6. ALBUTEROL [Concomitant]
  7. ATROVENT [Concomitant]
  8. SIMVASTATIN [Concomitant]
  9. PHOSLO [Concomitant]
  10. NEURONTIN [Concomitant]
  11. SENOKOT [Concomitant]

REACTIONS (3)
  - CARDIAC FAILURE [None]
  - CARDIOMYOPATHY [None]
  - VIRAL MYOCARDITIS [None]
